FAERS Safety Report 9049123 (Version 1)
Quarter: 2013Q1

REPORT INFORMATION
  Report Type: Spontaneous
  Country: US (occurrence: None)
  Receive Date: 20130130
  Receipt Date: 20130130
  Transmission Date: 20140127
  Serious: Yes (Life-Threatening)
  Sender: FDA-Public Use
  Company Number: None

PATIENT
  Age: 77 Year
  Sex: Male
  Weight: 81.65 kg

DRUGS (2)
  1. CYMBALTA [Suspect]
     Indication: NEURALGIA
     Dosage: 1  A DAY
     Dates: start: 20121221, end: 20121227
  2. CYMBALTA [Suspect]
     Indication: NEURALGIA
     Dosage: 1 A DAY
     Dates: start: 20121228, end: 20130102

REACTIONS (10)
  - Nausea [None]
  - Hypotension [None]
  - Heart rate increased [None]
  - Respiratory rate decreased [None]
  - Heart rate decreased [None]
  - Rash [None]
  - Visual acuity reduced [None]
  - Weight decreased [None]
  - Dizziness [None]
  - Syncope [None]
